FAERS Safety Report 8785568 (Version 1)
Quarter: 2012Q4

REPORT INFORMATION
  Report Type: 
  Country: GB (occurrence: GB)
  Receive Date: 20120914
  Receipt Date: 20120914
  Transmission Date: 20130627
  Serious: Yes (Other)
  Sender: FDA-Public Use
  Company Number: GB-ASTRAZENECA-2011SE47308

PATIENT
  Age: 39 Year
  Sex: Female

DRUGS (2)
  1. ZOLADEX [Suspect]
     Indication: UTERINE LEIOMYOMA
     Route: 058
     Dates: start: 20090819
  2. ZOLADEX [Suspect]
     Indication: UTERINE LEIOMYOMA
     Route: 058
     Dates: start: 20090916

REACTIONS (4)
  - Premature menopause [Not Recovered/Not Resolved]
  - Abdominal distension [Unknown]
  - Weight increased [Unknown]
  - Hyperhidrosis [Unknown]
